FAERS Safety Report 16690677 (Version 4)
Quarter: 2020Q3

REPORT INFORMATION
  Report Type: Spontaneous
  Country: GB (occurrence: GB)
  Receive Date: 20190811
  Receipt Date: 20200925
  Transmission Date: 20201102
  Serious: Yes (Hospitalization, Other)
  Sender: FDA-Public Use
  Company Number: PHHY2019GB182704

PATIENT
  Age: 54 Year
  Sex: Female

DRUGS (26)
  1. HYDROCORTISONE. [Concomitant]
     Active Substance: HYDROCORTISONE
     Indication: PREMEDICATION
     Dosage: FREQUENCY: ONCE BEFORE TREATMENT
     Route: 061
     Dates: start: 2015
  2. DALTEPARIN [Concomitant]
     Active Substance: DALTEPARIN
     Indication: PROPHYLAXIS
     Dosage: 2 %, QD
     Route: 061
     Dates: start: 20170327, end: 20170328
  3. TRASTUZUMAB. [Suspect]
     Active Substance: TRASTUZUMAB
     Indication: BREAST CANCER METASTATIC
     Dosage: 600 MG, Q3W
     Route: 041
     Dates: start: 20170316, end: 20171130
  4. DENOSUMAB [Concomitant]
     Active Substance: DENOSUMAB
     Indication: BONE DISORDER
     Dosage: 120 MG (6 WEEK)
     Route: 058
     Dates: start: 20180111
  5. TRASTUZUMAB. [Suspect]
     Active Substance: TRASTUZUMAB
     Dosage: 350 MG, Q3W
     Route: 040
     Dates: start: 20171220
  6. METOCLOPRAMIDE. [Concomitant]
     Active Substance: METOCLOPRAMIDE
     Indication: PROPHYLAXIS OF NAUSEA AND VOMITING
     Dosage: 30 MG, QD
     Route: 048
     Dates: start: 20170316
  7. SODIUM FUSIDATE [Concomitant]
     Active Substance: FUSIDATE SODIUM
     Indication: PRODUCT USED FOR UNKNOWN INDICATION
     Dosage: 2 %, QD
     Route: 061
     Dates: start: 20170324, end: 20170328
  8. TRASTUZUMAB. [Suspect]
     Active Substance: TRASTUZUMAB
     Indication: BREAST CANCER METASTATIC
     Dosage: 600 MG, Q3W
     Route: 058
     Dates: start: 20170316
  9. DEXAMETHASONE. [Concomitant]
     Active Substance: DEXAMETHASONE
     Dosage: 0.5 MG, QD
     Route: 048
     Dates: start: 20190601
  10. PERTUZUMAB. [Suspect]
     Active Substance: PERTUZUMAB
     Indication: BREAST CANCER METASTATIC
     Dosage: FREQUENCY: OTHER
     Route: 042
     Dates: start: 20170316, end: 20170316
  11. ONDANSETRON [Concomitant]
     Active Substance: ONDANSETRON
     Indication: PROPHYLAXIS OF NAUSEA AND VOMITING
     Dosage: 16 MG, QD
     Route: 048
     Dates: start: 20170316
  12. GRANISETRON [Concomitant]
     Active Substance: GRANISETRON
     Indication: PREMEDICATION
     Dosage: FREQUENCY: ONCE BEFORE TREATMENT
     Route: 042
     Dates: start: 20170316
  13. DEXAMETHASONE. [Concomitant]
     Active Substance: DEXAMETHASONE
     Indication: PREMEDICATION
     Dosage: 16 MG, QD
     Route: 048
     Dates: start: 20170315
  14. APREPITANT. [Concomitant]
     Active Substance: APREPITANT
     Indication: PREMEDICATION
     Dosage: 250 MG, QD (FREQUENCY: ONCE BEFORE TREATMENT)
     Route: 048
     Dates: start: 20170316
  15. DOCETAXEL. [Suspect]
     Active Substance: DOCETAXEL
     Dosage: 120 MG, Q3W
     Route: 042
     Dates: start: 20170316
  16. PERTUZUMAB. [Suspect]
     Active Substance: PERTUZUMAB
     Dosage: 420 MG, Q3W
     Route: 042
     Dates: start: 20170406
  17. DEXAMETHASONE. [Concomitant]
     Active Substance: DEXAMETHASONE
     Indication: PROPHYLAXIS OF NAUSEA AND VOMITING
     Dosage: 1 MG, QD
     Route: 048
     Dates: start: 201811, end: 20181113
  18. DEXAMETHASONE. [Concomitant]
     Active Substance: DEXAMETHASONE
     Dosage: 6.6 MG (FREQUENCY: ONCE BEFORE TREATMENT)
     Route: 065
     Dates: start: 20170316
  19. PARACETAMOL [Concomitant]
     Active Substance: ACETAMINOPHEN
     Indication: PREMEDICATION
     Dosage: FREQUENCY: ONCE BEFORE TREATMENT
     Route: 048
     Dates: start: 20170316
  20. CHLORPHENAMINE [Concomitant]
     Active Substance: CHLORPHENIRAMINE MALEATE
     Indication: PREMEDICATION
     Dosage: FREQUENCY: ONCE BEFORE TREATMENT
     Route: 042
     Dates: start: 20170316
  21. NISTATIN [Concomitant]
     Active Substance: NYSTATIN
     Indication: PRODUCT USED FOR UNKNOWN INDICATION
     Dosage: DOSE: 100000 U
     Route: 048
     Dates: start: 20190603
  22. DEXAMETHASONE. [Concomitant]
     Active Substance: DEXAMETHASONE
     Dosage: 0.5 MG, QD
     Route: 048
     Dates: start: 20181113
  23. APREPITANT. [Concomitant]
     Active Substance: APREPITANT
     Dosage: FREQUENCY: ONCE BEFORE TREATMENT
     Route: 048
     Dates: start: 20170316
  24. ONDANSETRON [Concomitant]
     Active Substance: ONDANSETRON
     Dosage: 8 MG
     Route: 048
     Dates: start: 20170316
  25. METOCLOPRAMIDE. [Concomitant]
     Active Substance: METOCLOPRAMIDE
     Dosage: 10 MG
     Route: 048
     Dates: start: 20170316
  26. DEXAMETHASONE. [Concomitant]
     Active Substance: DEXAMETHASONE
     Dosage: 8 MG
     Route: 048
     Dates: start: 20170315

REACTIONS (11)
  - Haematemesis [Recovered/Resolved]
  - Decreased appetite [Not Recovered/Not Resolved]
  - Alopecia [Recovered/Resolved]
  - Hypernatraemia [Recovered/Resolved]
  - Candida infection [Recovered/Resolved]
  - Onychalgia [Recovered/Resolved]
  - Pain in jaw [Recovered/Resolved]
  - Nausea [Not Recovered/Not Resolved]
  - Neutropenia [Recovered/Resolved]
  - Fatigue [Not Recovered/Not Resolved]
  - Malaise [Recovered/Resolved]

NARRATIVE: CASE EVENT DATE: 20170324
